FAERS Safety Report 24224274 (Version 1)
Quarter: 2024Q3

REPORT INFORMATION
  Report Type: Spontaneous
  Country: DE (occurrence: DE)
  Receive Date: 20240819
  Receipt Date: 20240819
  Transmission Date: 20241016
  Serious: Yes (Life-Threatening, Hospitalization)
  Sender: SANDOZ
  Company Number: None

PATIENT
  Age: 8 Year
  Sex: Male
  Weight: 35 kg

DRUGS (1)
  1. RITALIN [Suspect]
     Active Substance: METHYLPHENIDATE HYDROCHLORIDE
     Indication: Attention deficit hyperactivity disorder
     Dosage: 1-1-0.5
     Route: 048
     Dates: start: 2000, end: 200101

REACTIONS (2)
  - Pulmonary hypertension [Not Recovered/Not Resolved]
  - Dilatation ventricular [Unknown]

NARRATIVE: CASE EVENT DATE: 20010101
